FAERS Safety Report 4854459-6 (Version None)
Quarter: 2005Q4

REPORT INFORMATION
  Report Type: 
  Country: None (occurrence: None)
  Receive Date: 20051215
  Receipt Date: 20051213
  Transmission Date: 20060501
  Serious: Yes (Death)
  Sender: FDA-Public Use
  Company Number: DE-BRISTOL-MYERS SQUIBB COMPANY-13213939

PATIENT
  Age: 68 Year
  Sex: Male
  Weight: 85 kg

DRUGS (16)
  1. CISPLATIN [Suspect]
     Indication: SMALL CELL LUNG CANCER STAGE UNSPECIFIED
     Route: 042
     Dates: start: 20051125, end: 20051125
  2. CAMPTOSAR [Suspect]
     Indication: SMALL CELL LUNG CANCER STAGE UNSPECIFIED
     Route: 042
     Dates: start: 20051125, end: 20051125
  3. DIPYRONE TAB [Concomitant]
     Route: 048
     Dates: start: 20051117, end: 20051126
  4. THIAMAZOLE [Concomitant]
     Route: 048
     Dates: start: 20051122, end: 20051126
  5. UNACID [Concomitant]
     Route: 048
     Dates: start: 20051122, end: 20051126
  6. IBUPROFEN [Concomitant]
     Route: 048
     Dates: start: 20051124, end: 20051126
  7. PANTOZOL [Concomitant]
     Route: 048
     Dates: start: 20051124, end: 20051126
  8. METOCLOPRAMIDE [Concomitant]
     Route: 048
     Dates: start: 20051124, end: 20051126
  9. BIFITERAL [Concomitant]
     Route: 048
     Dates: start: 20051122, end: 20051125
  10. EMEND [Concomitant]
     Route: 048
     Dates: start: 20051125, end: 20051126
  11. MANNITOL [Concomitant]
     Route: 042
     Dates: start: 20051125, end: 20051126
  12. GRANISETRON [Concomitant]
     Route: 042
     Dates: start: 20051125, end: 20051125
  13. SODIUM CHLORIDE [Concomitant]
     Route: 042
     Dates: start: 20051125, end: 20051125
  14. POTASSIUM CHLORIDE [Concomitant]
     Route: 042
     Dates: start: 20051125, end: 20051125
  15. MAGNESIUM [Concomitant]
     Route: 042
     Dates: start: 20051125, end: 20051125
  16. DEXAMETHASONE [Concomitant]
     Route: 042
     Dates: start: 20051125, end: 20051125

REACTIONS (2)
  - ARRHYTHMIA [None]
  - SUDDEN CARDIAC DEATH [None]
